FAERS Safety Report 5725291-6 (Version None)
Quarter: 2008Q2

REPORT INFORMATION
  Report Type: 
  Country: None (occurrence: None)
  Receive Date: 20080430
  Receipt Date: 20080419
  Transmission Date: 20081010
  Serious: Yes (Other)
  Sender: FDA-Public Use
  Company Number: CHPA2008US06968

PATIENT
  Age: 30 Month
  Sex: Male
  Weight: 17.2 kg

DRUGS (1)
  1. TRIAMINIC COUGH + SORE THROAT WITHOUT PSE (NCH) (DEXTROMETHORPHAN HYDR [Suspect]
     Dosage: 0.5 TSP, TID, ORAL
     Route: 048
     Dates: start: 20080418, end: 20080418

REACTIONS (2)
  - HALLUCINATION, VISUAL [None]
  - SCREAMING [None]
